FAERS Safety Report 9712684 (Version 1)
Quarter: 2013Q4

REPORT INFORMATION
  Report Type: Spontaneous
  Country: US (occurrence: US)
  Receive Date: 20131126
  Receipt Date: 20131126
  Transmission Date: 20140711
  Serious: No
  Sender: FDA-Public Use
  Company Number: US-BRISTOL-MYERS SQUIBB COMPANY-18897124

PATIENT
  Age: 66 Year
  Sex: Female
  Weight: 90.25 kg

DRUGS (4)
  1. BYDUREON [Suspect]
     Indication: TYPE 2 DIABETES MELLITUS
     Dosage: INJECTION
     Route: 058
     Dates: start: 20130506
  2. METFORMIN [Concomitant]
  3. LEVEMIR [Concomitant]
  4. INSULIN [Concomitant]

REACTIONS (3)
  - Injection site discolouration [Not Recovered/Not Resolved]
  - Injection site nodule [Not Recovered/Not Resolved]
  - Injection site pain [Not Recovered/Not Resolved]
